FAERS Safety Report 11966968 (Version 1)
Quarter: 2016Q1

REPORT INFORMATION
  Report Type: Spontaneous
  Country: BE (occurrence: BE)
  Receive Date: 20160127
  Receipt Date: 20160127
  Transmission Date: 20160526
  Serious: Yes (Other)
  Sender: FDA-Public Use
  Company Number: BE-ABBVIE-15K-013-1501138-00

PATIENT
  Age: 52 Year
  Sex: Male
  Weight: 80 kg

DRUGS (1)
  1. HUMIRA [Suspect]
     Active Substance: ADALIMUMAB
     Indication: COLITIS ULCERATIVE
     Route: 058
     Dates: start: 201409, end: 201510

REACTIONS (3)
  - Dyspnoea exertional [Recovering/Resolving]
  - Cough [Recovering/Resolving]
  - Interstitial lung disease [Unknown]

NARRATIVE: CASE EVENT DATE: 201509
